FAERS Safety Report 7117927-2 (Version None)
Quarter: 2010Q4

REPORT INFORMATION
  Report Type: 
  Country: None (occurrence: None)
  Receive Date: 20101118
  Receipt Date: 20101118
  Transmission Date: 20110411
  Serious: Yes (Hospitalization)
  Sender: FDA-Public Use
  Company Number: None

PATIENT
  Age: 79 Year
  Sex: Female
  Weight: 86.4 kg

DRUGS (14)
  1. TRAMADOL HCL [Suspect]
     Indication: PAIN PROPHYLAXIS
     Dosage: TRAMADOL 50MG ONCE DAILY IN AM PO
     Route: 048
     Dates: start: 20100227, end: 20100416
  2. ASPIRIN [Concomitant]
  3. FUROSEMIDE [Concomitant]
  4. LISINOPRIL [Concomitant]
  5. MULTI-VITAMIN [Concomitant]
  6. LOVASTATIN [Concomitant]
  7. COLACE [Concomitant]
  8. FAMOTIDINE [Concomitant]
  9. BUSPAR [Concomitant]
  10. TUMS [Concomitant]
  11. MECLIZINE [Concomitant]
  12. ACETAMINOHEN [Concomitant]
  13. ZINC SULFATE [Concomitant]
  14. NIZORAL [Concomitant]

REACTIONS (2)
  - CONVULSION [None]
  - LETHARGY [None]
